FAERS Safety Report 5680655-4 (Version None)
Quarter: 2008Q1

REPORT INFORMATION
  Report Type: 
  Country: None (occurrence: None)
  Receive Date: 20080326
  Receipt Date: 20080222
  Transmission Date: 20080703
  Serious: No
  Sender: FDA-Public Use
  Company Number: A0711349A

PATIENT
  Age: 6 Year
  Sex: Male

DRUGS (3)
  1. FLOVENT [Suspect]
     Indication: ASTHMA
     Route: 055
     Dates: start: 20071201
  2. ALLERGY MEDICATION [Concomitant]
     Route: 048
  3. COD LIVER OIL [Concomitant]

REACTIONS (1)
  - POLLAKIURIA [None]
